FAERS Safety Report 24071693 (Version 1)
Quarter: 2024Q3

REPORT INFORMATION
  Report Type: Report from Study
  Country: CN (occurrence: CN)
  Receive Date: 20240710
  Receipt Date: 20240710
  Transmission Date: 20241017
  Serious: No
  Sender: ROCHE
  Company Number: CN-ROCHE-3579333

PATIENT
  Age: 48 Year
  Sex: Male
  Weight: 73.0 kg

DRUGS (18)
  1. ALECTINIB [Suspect]
     Active Substance: ALECTINIB
     Indication: Non-small cell lung cancer metastatic
     Route: 048
     Dates: start: 20230224
  2. ALECTINIB [Suspect]
     Active Substance: ALECTINIB
     Route: 048
     Dates: start: 20230203
  3. VITAMINS WITH MINERALS [Concomitant]
     Active Substance: MINERALS\VITAMINS
     Dosage: 1 TABLET
     Route: 048
     Dates: start: 20230119
  4. INSULIN LISPRO [Concomitant]
     Active Substance: INSULIN LISPRO
     Indication: Diabetes mellitus
     Dosage: 18 U
     Route: 058
     Dates: start: 20240204
  5. INSULIN GLARGINE [Concomitant]
     Active Substance: INSULIN GLARGINE
     Indication: Diabetes mellitus
     Dosage: 26 U
     Route: 058
     Dates: start: 20240204
  6. LEVOTHYROXINE SODIUM [Concomitant]
     Active Substance: LEVOTHYROXINE SODIUM
     Indication: Hypothyroidism
     Route: 048
     Dates: start: 20240201
  7. ATORVASTATIN CALCIUM [Concomitant]
     Active Substance: ATORVASTATIN CALCIUM
     Indication: Subclavian arteriosclerosis
     Route: 048
     Dates: start: 20240131
  8. CALCIPOTRIENE [Concomitant]
     Active Substance: CALCIPOTRIENE
     Indication: Dermatitis
     Dosage: UK OTHER
     Route: 061
     Dates: start: 20240130
  9. COMPOUND VITAMIN B6 [Concomitant]
     Route: 042
     Dates: start: 20240322, end: 20240326
  10. ETOPOSIDE [Concomitant]
     Active Substance: ETOPOSIDE
     Route: 048
     Dates: end: 20240325
  11. MAGNESIUM ISOGLYCYRRHIZINATE [Concomitant]
     Active Substance: MAGNESIUM ISOGLYCYRRHIZINATE
     Route: 042
     Dates: start: 20240323, end: 20240326
  12. ILAPRAZOLE [Concomitant]
     Active Substance: ILAPRAZOLE
     Route: 042
     Dates: start: 20240323, end: 20240326
  13. TROPISETRON HYDROCHLORIDE AND GLUCOSE [Concomitant]
     Indication: Prophylaxis of nausea and vomiting
     Route: 042
     Dates: start: 20240323, end: 20240325
  14. CARBOPLATIN [Concomitant]
     Active Substance: CARBOPLATIN
     Route: 042
     Dates: start: 20240323, end: 20240323
  15. APREPITANT [Concomitant]
     Active Substance: APREPITANT
     Indication: Prophylaxis of nausea and vomiting
     Route: 048
     Dates: start: 20240323, end: 20240323
  16. APREPITANT [Concomitant]
     Active Substance: APREPITANT
     Route: 048
     Dates: start: 20240324, end: 20240325
  17. KANGAI [Concomitant]
     Route: 042
     Dates: start: 20240422, end: 20240426
  18. COMPOUND VITAMIN (3) [Concomitant]
     Route: 042
     Dates: start: 20240422, end: 20240426

REACTIONS (1)
  - Thrombocytopenia [Not Recovered/Not Resolved]

NARRATIVE: CASE EVENT DATE: 20240326
